FAERS Safety Report 8397034-1 (Version None)
Quarter: 2012Q2

REPORT INFORMATION
  Report Type: 
  Country: None (occurrence: None)
  Receive Date: 20120530
  Receipt Date: 20120523
  Transmission Date: 20120825
  Serious: No
  Sender: FDA-Public Use
  Company Number: US-BAYER-2012-052777

PATIENT
  Age: 19 Year
  Sex: Female
  Weight: 91 kg

DRUGS (3)
  1. ALEVE (CAPLET) [Suspect]
     Dosage: 2 DF, UNK
     Route: 048
  2. ORAL CONTRACEPTIVE NOS [Concomitant]
  3. CIPROFLOXACIN [Concomitant]
     Indication: URINARY TRACT INFECTION

REACTIONS (1)
  - NO ADVERSE EVENT [None]
